FAERS Safety Report 13008079 (Version 1)
Quarter: 2016Q4

REPORT INFORMATION
  Report Type: Report from Study
  Country: None (occurrence: TW)
  Receive Date: 20161208
  Receipt Date: 20161208
  Transmission Date: 20170207
  Serious: Yes (Hospitalization, Other)
  Sender: FDA-Public Use
  Company Number: TW-ABBVIE-16K-153-1756516-00

PATIENT
  Sex: Female
  Weight: 80.3 kg

DRUGS (1)
  1. HUMIRA [Suspect]
     Active Substance: ADALIMUMAB
     Indication: RHEUMATOID ARTHRITIS
     Route: 058
     Dates: start: 20020905, end: 20160928

REACTIONS (8)
  - Rib fracture [Unknown]
  - Aortic disorder [Unknown]
  - Cellulitis [Recovered/Resolved]
  - Blood blister [Unknown]
  - Spinal osteoarthritis [Unknown]
  - Chest X-ray abnormal [Unknown]
  - Spinal operation [Unknown]
  - Osteoarthritis [Unknown]
